FAERS Safety Report 10461613 (Version 1)
Quarter: 2014Q3

REPORT INFORMATION
  Report Type: Spontaneous
  Country: US (occurrence: US)
  Receive Date: 20140918
  Receipt Date: 20140918
  Transmission Date: 20150326
  Serious: Yes (Hospitalization, Other)
  Sender: FDA-Public Use
  Company Number: US-ASTRAZENECA-2014SE68831

PATIENT
  Age: 26334 Day
  Sex: Female
  Weight: 86.2 kg

DRUGS (11)
  1. NEXIUM [Suspect]
     Active Substance: ESOMEPRAZOLE MAGNESIUM
     Indication: GASTROOESOPHAGEAL REFLUX DISEASE
     Route: 048
     Dates: start: 2001
  2. BABY ASA [Concomitant]
     Active Substance: ASPIRIN
     Dosage: DAILY
     Route: 048
  3. ADVIL [Concomitant]
     Active Substance: IBUPROFEN
     Indication: ARTHRITIS
     Dosage: DAILY
     Route: 048
  4. MVI [Concomitant]
     Active Substance: VITAMINS
     Dosage: DAILY
     Route: 048
  5. CALCIUM WITH D [Concomitant]
     Active Substance: CALCIUM\VITAMIN D
     Dosage: BID
     Route: 048
  6. METOPROLOL [Suspect]
     Active Substance: METOPROLOL
     Indication: SUPRAVENTRICULAR TACHYCARDIA
     Route: 048
     Dates: start: 201112
  7. SYNTHROID [Concomitant]
     Active Substance: LEVOTHYROXINE SODIUM
     Indication: HYPOTHYROIDISM
     Route: 048
  8. VYTORIN [Concomitant]
     Active Substance: EZETIMIBE\SIMVASTATIN
     Indication: BLOOD CHOLESTEROL ABNORMAL
     Dosage: 10/40 DAILY
     Route: 048
  9. BENTYL GENERIC [Concomitant]
     Indication: IRRITABLE BOWEL SYNDROME
     Route: 048
  10. NEXIUM [Suspect]
     Active Substance: ESOMEPRAZOLE MAGNESIUM
     Indication: GASTROOESOPHAGEAL REFLUX DISEASE
     Dosage: TAKES 2 OF THE OTC TO EQUAL THE 40 MG ( 40 MG DAILY)
     Route: 048
     Dates: start: 2014
  11. VITAMIN D [Concomitant]
     Active Substance: CHOLECALCIFEROL
     Route: 048

REACTIONS (8)
  - Intentional product misuse [Unknown]
  - Burning sensation [Unknown]
  - Gastrooesophageal reflux disease [Unknown]
  - Oropharyngeal pain [Unknown]
  - Atrial fibrillation [Unknown]
  - Supraventricular tachycardia [Unknown]
  - Hypothyroidism [Unknown]
  - Adverse event [Unknown]

NARRATIVE: CASE EVENT DATE: 20140908
